FAERS Safety Report 6553369-6 (Version None)
Quarter: 2010Q1

REPORT INFORMATION
  Report Type: 
  Country: None (occurrence: None)
  Receive Date: 20100127
  Receipt Date: 20090828
  Transmission Date: 20100710
  Serious: No
  Sender: FDA-Public Use
  Company Number: A0800954A

PATIENT
  Age: 37 Year
  Sex: Female

DRUGS (7)
  1. IMITREX [Suspect]
     Indication: MIGRAINE
     Dosage: 6MG AS REQUIRED
     Route: 058
     Dates: start: 20080201
  2. NASONEX [Concomitant]
  3. ROBAXIN [Concomitant]
  4. VICODIN [Concomitant]
  5. SYNTHROID [Concomitant]
  6. AMBIEN [Concomitant]
  7. NAPROXEN [Concomitant]

REACTIONS (1)
  - DRUG INEFFECTIVE [None]
